FAERS Safety Report 7559232-6 (Version None)
Quarter: 2011Q2

REPORT INFORMATION
  Report Type: 
  Country: None (occurrence: None)
  Receive Date: 20110621
  Receipt Date: 20110603
  Transmission Date: 20111010
  Serious: No
  Sender: FDA-Public Use
  Company Number: US-B.I. PHARMACEUTICALS,INC./RIDGEFIELD-2011-BP-11213BP

PATIENT
  Age: 88 Year
  Sex: Female

DRUGS (6)
  1. PRADAXA [Suspect]
     Indication: ATRIAL FIBRILLATION
     Dosage: 150 MG
     Route: 048
     Dates: start: 20110330
  2. DIOVAN [Concomitant]
     Indication: CARDIAC DISORDER
     Dosage: 320 MG
     Dates: start: 20100101
  3. POTASSIUM [Concomitant]
  4. LASIX [Concomitant]
     Indication: SWELLING
  5. VITAMIN TAB [Concomitant]
  6. CARDIA [Concomitant]
     Indication: CARDIAC DISORDER
     Dosage: 180 MG
     Dates: start: 20100101

REACTIONS (1)
  - MUSCLE SPASMS [None]
